FAERS Safety Report 12278714 (Version 28)
Quarter: 2020Q2

REPORT INFORMATION
  Report Type: Report from Study
  Country: US (occurrence: US)
  Receive Date: 20160418
  Receipt Date: 20200417
  Transmission Date: 20200713
  Serious: Yes (Death, Hospitalization, Disabling)
  Sender: FDA-Public Use
  Company Number: US-ACTELION-A-US2016-133331

PATIENT
  Age: 70 Year
  Sex: Female
  Weight: 83.9 kg

DRUGS (32)
  1. OPSUMIT [Suspect]
     Active Substance: MACITENTAN
     Indication: PULMONARY HYPERTENSION
     Dosage: 10 MG, QD
     Route: 048
     Dates: start: 20150222, end: 20200312
  2. ELIQUIS [Concomitant]
     Active Substance: APIXABAN
     Dosage: UNK
     Dates: start: 20160806
  3. FLONASE [Concomitant]
     Active Substance: FLUTICASONE PROPIONATE
     Dosage: UNK
     Dates: start: 20160806
  4. SERTRALINE [Concomitant]
     Active Substance: SERTRALINE HYDROCHLORIDE
     Dosage: 50 MG, UNK
  5. REVATIO [Concomitant]
     Active Substance: SILDENAFIL CITRATE
  6. PROTONIX [Concomitant]
     Active Substance: PANTOPRAZOLE SODIUM
     Dosage: UNK
     Dates: start: 20160725
  7. ARANESP [Concomitant]
     Active Substance: DARBEPOETIN ALFA
     Dosage: UNK
     Dates: start: 20160806
  8. ADVAIR HFA [Concomitant]
     Active Substance: FLUTICASONE PROPIONATE\SALMETEROL XINAFOATE
     Dosage: 2 PUFF, UNK
  9. DUONEB [Concomitant]
     Active Substance: ALBUTEROL SULFATE\IPRATROPIUM BROMIDE
     Dosage: UNK
     Dates: start: 20160810
  10. OXYGEN. [Concomitant]
     Active Substance: OXYGEN
  11. MARCAINE [Concomitant]
     Active Substance: BUPIVACAINE HYDROCHLORIDE
     Dosage: UNK
     Dates: start: 20160810
  12. ROBINUL [Concomitant]
     Active Substance: GLYCOPYRROLATE
     Dosage: UNK
     Dates: start: 20160810
  13. OPSUMIT [Suspect]
     Active Substance: MACITENTAN
     Dosage: 10 MG, QD
     Route: 048
  14. XARELTO [Concomitant]
     Active Substance: RIVAROXABAN
  15. ZAROXOLYN [Concomitant]
     Active Substance: METOLAZONE
  16. ANCEF [Concomitant]
     Active Substance: CEFAZOLIN SODIUM
     Dosage: UNK
     Dates: start: 20160810
  17. ADEMPAS [Concomitant]
     Active Substance: RIOCIGUAT
     Dosage: 0.5 MG
  18. ZOFRAN [Concomitant]
     Active Substance: ONDANSETRON HYDROCHLORIDE
     Dosage: UNK
     Dates: start: 20160806
  19. VITAMINS NOS [Concomitant]
     Active Substance: VITAMINS
     Dosage: UNK
     Dates: start: 20160810
  20. MIDODRINE [Concomitant]
     Active Substance: MIDODRINE
     Dosage: 10 MG, TID
     Dates: start: 20170809
  21. DILTIAZEM. [Concomitant]
     Active Substance: DILTIAZEM
  22. AMIODARONE [Concomitant]
     Active Substance: AMIODARONE
  23. SOTALOL. [Concomitant]
     Active Substance: SOTALOL
  24. SODIUM CHLORIDE. [Concomitant]
     Active Substance: SODIUM CHLORIDE
     Dosage: UNK
     Dates: start: 20160725
  25. PHOSLO [Concomitant]
     Active Substance: CALCIUM ACETATE
     Dosage: UNK
     Dates: start: 20160806
  26. OPSUMIT [Suspect]
     Active Substance: MACITENTAN
     Dosage: UNK
     Route: 048
  27. TYLENOL [Concomitant]
     Active Substance: ACETAMINOPHEN
     Dosage: UNK
     Dates: start: 20160725
  28. PEPCID [Concomitant]
     Active Substance: FAMOTIDINE
     Dosage: UNK
     Dates: start: 20160806
  29. METOPROLOL. [Concomitant]
     Active Substance: METOPROLOL
     Dosage: UNK, BID
  30. ALPRAZOLAM. [Concomitant]
     Active Substance: ALPRAZOLAM
     Dosage: 0.5 MG, BID
     Dates: start: 20170810
  31. FLUOROMETHOLONE. [Concomitant]
     Active Substance: FLUOROMETHOLONE
  32. PROAIR HFA [Concomitant]
     Active Substance: ALBUTEROL SULFATE
     Dosage: 2 PUFF, Q4HRS

REACTIONS (53)
  - Staphylococcal bacteraemia [Unknown]
  - Somnolence [Unknown]
  - Sepsis [Unknown]
  - Renal failure [Recovered/Resolved]
  - Azotaemia [Recovered/Resolved]
  - Cardiac failure [Unknown]
  - Pulmonary arterial hypertension [Unknown]
  - Cardiac failure congestive [Unknown]
  - Dyspnoea [Unknown]
  - Oedema [Recovered/Resolved]
  - Fall [Unknown]
  - Haematochezia [Recovering/Resolving]
  - Diarrhoea [Unknown]
  - Haemodialysis [Unknown]
  - Right ventricular failure [Recovered/Resolved]
  - Posterior capsule opacification [Unknown]
  - Oedema peripheral [Recovered/Resolved]
  - Cerebral infarction [Unknown]
  - Muscular weakness [Unknown]
  - Total lung capacity decreased [Unknown]
  - Malaise [Unknown]
  - Insomnia [Unknown]
  - Bronchitis [Unknown]
  - Haemorrhoids [Unknown]
  - End stage renal disease [Recovered/Resolved]
  - Clostridium difficile colitis [Recovered/Resolved]
  - Clostridium test positive [Recovered/Resolved]
  - Fatigue [Unknown]
  - Nasopharyngitis [Unknown]
  - Lower respiratory tract infection [Unknown]
  - Pneumonia [Unknown]
  - Diverticulum [Recovered/Resolved]
  - Cardiac failure acute [Recovered/Resolved]
  - Fluid overload [Unknown]
  - Cardiac disorder [Recovering/Resolving]
  - Cough [Unknown]
  - Serratia infection [Unknown]
  - Pulmonary congestion [Unknown]
  - Respiratory failure [Fatal]
  - Cerebrovascular accident [Unknown]
  - Gastrointestinal haemorrhage [Recovering/Resolving]
  - Atrial flutter [Recovered/Resolved]
  - Atrial fibrillation [Unknown]
  - Condition aggravated [Recovered/Resolved]
  - Posterior lens capsulotomy [Unknown]
  - Confusional state [Unknown]
  - Dyspnoea exertional [Unknown]
  - Anal incontinence [Unknown]
  - Haemoglobin decreased [Recovering/Resolving]
  - Chronic obstructive pulmonary disease [Unknown]
  - Hypotension [Unknown]
  - Intraventricular haemorrhage [Unknown]
  - Sinusitis [Unknown]

NARRATIVE: CASE EVENT DATE: 201502
